FAERS Safety Report 22013288 (Version 3)
Quarter: 2023Q2

REPORT INFORMATION
  Report Type: Spontaneous
  Country: FR (occurrence: FR)
  Receive Date: 20230220
  Receipt Date: 20230511
  Transmission Date: 20230722
  Serious: Yes (Other)
  Sender: FDA-Public Use
  Company Number: FR-BAUSCH-BL-2023-002993

PATIENT
  Age: 42 Year
  Sex: Male
  Weight: 93 kg

DRUGS (2)
  1. BRODALUMAB [Suspect]
     Active Substance: BRODALUMAB
     Indication: Psoriasis
     Route: 058
     Dates: start: 20210720, end: 20220815
  2. LEVOTHYROXINE [Concomitant]
     Active Substance: LEVOTHYROXINE
     Indication: Congenital hypothyroidism

REACTIONS (5)
  - Uveitis [Recovered/Resolved]
  - Uveitis [Recovered/Resolved]
  - Uveitis [Recovering/Resolving]
  - Pain [Recovered/Resolved]
  - Visual acuity reduced [Recovered/Resolved]

NARRATIVE: CASE EVENT DATE: 20210801
